FAERS Safety Report 10543581 (Version 2)
Quarter: 2014Q4

REPORT INFORMATION
  Report Type: Report from Study
  Country: JP (occurrence: JP)
  Receive Date: 20141027
  Receipt Date: 20141114
  Transmission Date: 20150529
  Serious: Yes (Death)
  Sender: FDA-Public Use
  Company Number: JP-PFIZER INC-2014289524

PATIENT
  Age: 42 Year
  Sex: Male
  Weight: 80 kg

DRUGS (10)
  1. DECADRON [Concomitant]
     Active Substance: DEXAMETHASONE
     Indication: RENAL CELL CARCINOMA
     Dosage: 3.3 MG, 1X/DAY
     Route: 042
     Dates: start: 20120101, end: 20120124
  2. FLUMARIN [Concomitant]
     Active Substance: FLOMOXEF SODIUM
     Indication: PROPHYLAXIS
     Dosage: 1 G, 2X/DAY
     Route: 042
     Dates: start: 20120110, end: 20120123
  3. TEMSIROLIMUS [Suspect]
     Active Substance: TEMSIROLIMUS
     Dosage: 15 MG, 1X/DAY
     Route: 041
     Dates: start: 20120120, end: 20120120
  4. TEMSIROLIMUS [Suspect]
     Active Substance: TEMSIROLIMUS
     Indication: METASTATIC RENAL CELL CARCINOMA
     Dosage: 15 MG, CYCLIC (EVERY 8 DAYS)
     Route: 041
     Dates: start: 20111212, end: 20120113
  5. BISMILLA [Concomitant]
     Indication: PROPHYLAXIS
     Dosage: 5 MG, 1X/DAY (ON EVERY TEMSIROLIMUS ADMINISTRATION DATE)
     Route: 042
  6. LASIX [Concomitant]
     Active Substance: FUROSEMIDE
     Dosage: 20 MG, 1X/DAY
     Route: 042
     Dates: start: 20111226, end: 20120124
  7. TRYPTANOL [Concomitant]
     Active Substance: AMITRIPTYLINE
     Indication: RENAL CELL CARCINOMA
     Dosage: 10 MG, 1X/DAY
     Route: 048
     Dates: start: 20111215, end: 20111221
  8. ROPION [Concomitant]
     Active Substance: FLURBIPROFEN AXETIL
     Indication: RENAL CELL CARCINOMA
     Dosage: 50 MG, 2X/DAY
     Route: 042
     Dates: start: 20120101, end: 20120123
  9. LYRICA [Concomitant]
     Active Substance: PREGABALIN
     Dosage: 75 MG, 2X/DAY
     Route: 048
     Dates: end: 20111214
  10. GASTER [Concomitant]
     Active Substance: FAMOTIDINE
     Dosage: 20 MG, 1X/DAY
     Route: 042
     Dates: start: 20120101, end: 20120124

REACTIONS (1)
  - Death [Fatal]

NARRATIVE: CASE EVENT DATE: 20120125
